FAERS Safety Report 4613299-3 (Version None)
Quarter: 2005Q1

REPORT INFORMATION
  Report Type: 
  Country: None (occurrence: None)
  Receive Date: 20050316
  Receipt Date: 20050302
  Transmission Date: 20050727
  Serious: Yes (Hospitalization)
  Sender: FDA-Public Use
  Company Number: 2005PK00382

PATIENT
  Age: 48 Year
  Sex: Male

DRUGS (10)
  1. SEROQUEL [Suspect]
     Dosage: 400 MG DAILY PO
     Route: 048
     Dates: start: 20000817, end: 20000817
  2. SEROQUEL [Suspect]
     Dosage: 500 MG DAILY PO
     Route: 048
     Dates: start: 20000818
  3. TAXILAN [Suspect]
     Dosage: 150 MG DAILY PO
     Route: 048
     Dates: start: 20000813, end: 20000813
  4. TAXILAN [Suspect]
     Dosage: 100 MG DAILY PO
     Route: 048
     Dates: start: 20000816, end: 20000817
  5. ORFIRIL [Suspect]
     Dosage: 10000 MG DAILY
     Dates: start: 20000813, end: 20000830
  6. AMITRIPTYLINE HYDROCHLORIDE [Suspect]
     Dosage: 75 MG DAILY PO
     Route: 048
     Dates: start: 20000828, end: 20000829
  7. TRUXAL [Suspect]
     Dosage: 250 MG DAILY PO
     Route: 048
     Dates: start: 20000830, end: 20001006
  8. RISPERAL [Suspect]
     Dosage: 1 MG DAILY PO
     Route: 048
     Dates: start: 20000830, end: 20000830
  9. RISPERAL [Suspect]
     Dosage: 2MG DAILY PO
     Route: 048
     Dates: start: 20000831, end: 20000831
  10. RISPERAL [Suspect]
     Dosage: 3 MG DAILY PO
     Route: 048
     Dates: start: 20000901, end: 20000905

REACTIONS (3)
  - DRUG INTERACTION [None]
  - OEDEMA [None]
  - OEDEMA PERIPHERAL [None]
